FAERS Safety Report 7481293-3 (Version None)
Quarter: 2011Q2

REPORT INFORMATION
  Report Type: 
  Country: None (occurrence: None)
  Receive Date: 20110506
  Receipt Date: 20110422
  Transmission Date: 20111010
  Serious: Yes (Death, Other)
  Sender: FDA-Public Use
  Company Number: US-2011-10247

PATIENT
  Age: 48 Year
  Sex: Female

DRUGS (5)
  1. CYCLOPHOSPHAMIDE MONOHYDRATE (CYCLOPHOSPHAMIDE MONOHYDRATE) [Concomitant]
  2. BUSULFEX [Suspect]
     Indication: STEM CELL TRANSPLANT
     Dosage: INTRAVENOUS
     Route: 042
  3. CYCLOSPORINE [Concomitant]
  4. METHOTREXATE [Concomitant]
  5. METHOTREXATE [Concomitant]

REACTIONS (27)
  - ENCEPHALITIS VIRAL [None]
  - NEUROLOGICAL DECOMPENSATION [None]
  - ACUTE GRAFT VERSUS HOST DISEASE IN INTESTINE [None]
  - CONFUSIONAL STATE [None]
  - CSF PROTEIN INCREASED [None]
  - THROMBOCYTOPENIA [None]
  - THERAPEUTIC RESPONSE DECREASED [None]
  - DYSARTHRIA [None]
  - PYREXIA [None]
  - TREMOR [None]
  - COMA SCALE ABNORMAL [None]
  - HAEMOLYTIC ANAEMIA [None]
  - CHRONIC GRAFT VERSUS HOST DISEASE [None]
  - PSYCHOMOTOR RETARDATION [None]
  - ALBUMIN CSF INCREASED [None]
  - HYPOTONIA [None]
  - RENAL FAILURE ACUTE [None]
  - GAZE PALSY [None]
  - BK VIRUS INFECTION [None]
  - CSF IMMUNOGLOBULIN INCREASED [None]
  - BLOOD BRAIN BARRIER DEFECT [None]
  - THROMBOTIC MICROANGIOPATHY [None]
  - ACUTE GRAFT VERSUS HOST DISEASE IN SKIN [None]
  - STEM CELL TRANSPLANT [None]
  - SYNCOPE [None]
  - CSF LACTATE DEHYDROGENASE INCREASED [None]
  - VIITH NERVE PARALYSIS [None]
